FAERS Safety Report 8439499-2 (Version None)
Quarter: 2012Q2

REPORT INFORMATION
  Report Type: 
  Country: None (occurrence: None)
  Receive Date: 20120615
  Receipt Date: 20120607
  Transmission Date: 20120825
  Serious: Yes (Hospitalization)
  Sender: FDA-Public Use
  Company Number: JP-NAPPMUNDI-MAG-2012-0002187

PATIENT
  Age: 65 Year
  Sex: Male

DRUGS (6)
  1. RABEPRAZOLE SODIUM [Concomitant]
     Indication: PRODUCT USED FOR UNKNOWN INDICATION
     Dosage: 2 DF, DAILY
     Route: 048
  2. PRORENAL [Concomitant]
     Indication: PRODUCT USED FOR UNKNOWN INDICATION
     Dosage: 3 DF, DAILY
     Route: 048
     Dates: start: 20120404
  3. BUPRENORPHINE [Suspect]
     Indication: LUMBAR SPINAL STENOSIS
     Dosage: 5 MCG, Q1H
     Route: 062
     Dates: start: 20120404, end: 20120516
  4. METHYCOOL [Concomitant]
     Indication: PRODUCT USED FOR UNKNOWN INDICATION
     Dosage: 3 DF, DAILY
     Route: 048
  5. LYRICA [Concomitant]
     Indication: PRODUCT USED FOR UNKNOWN INDICATION
     Dosage: 2 DF, DAILY
     Route: 048
  6. VOLTAREN [Concomitant]
     Indication: PRODUCT USED FOR UNKNOWN INDICATION
     Dosage: 1 DF, DAILY
     Route: 048

REACTIONS (2)
  - INTESTINAL OBSTRUCTION [None]
  - CONSTIPATION [None]
